FAERS Safety Report 9435916 (Version 2)
Quarter: 2015Q2

REPORT INFORMATION
  Report Type: Report from Study
  Country: FR (occurrence: BE)
  Receive Date: 20130801
  Receipt Date: 20150501
  Transmission Date: 20150821
  Serious: Yes (Death, Hospitalization)
  Sender: FDA-Public Use
  Company Number: BE-FRI-1000044745

PATIENT
  Age: 60 Year
  Sex: Female
  Weight: 77.6 kg

DRUGS (26)
  1. NOVORAPID [Concomitant]
     Active Substance: INSULIN ASPART
     Dates: start: 20130328, end: 20130401
  2. CORSODYL [Concomitant]
     Active Substance: CHLORHEXIDINE GLUCONATE
     Indication: ANAEMIA
     Dates: start: 20130311, end: 20130413
  3. CORUNO [Concomitant]
     Active Substance: MOLSIDOMINE
     Indication: CORONARY ARTERY DISEASE
     Dates: start: 20130308, end: 20130412
  4. EMCONCOR [Concomitant]
     Active Substance: BISOPROLOL FUMARATE
     Indication: TACHYCARDIA
     Dates: start: 20130325, end: 20130412
  5. RED BLOOD CELLS, CONCENTRATED [Concomitant]
     Active Substance: HUMAN RED BLOOD CELL
     Indication: ANAEMIA
     Dates: start: 20130325, end: 20130326
  6. GLUCOPHAGE [Concomitant]
     Active Substance: METFORMIN HYDROCHLORIDE
     Dates: start: 20130308, end: 20130310
  7. LITICAN [Concomitant]
     Active Substance: ALIZAPRIDE HYDROCHLORIDE
     Indication: PROPHYLAXIS
  8. AUGMENTIN [Concomitant]
     Active Substance: AMOXICILLIN\CLAVULANATE POTASSIUM
     Indication: INFECTION
  9. COVERSYL [Concomitant]
     Active Substance: PERINDOPRIL
     Indication: HYPERTENSION
     Dates: start: 20130308, end: 20130310
  10. SIMVASTATINE SANDOZ [Concomitant]
     Active Substance: SIMVASTATIN
     Indication: HYPERCHOLESTEROLAEMIA
     Dates: start: 20130308, end: 20130412
  11. KONAKION [Concomitant]
     Active Substance: PHYTONADIONE
     Indication: INTERNATIONAL NORMALISED RATIO ABNORMAL
     Dosage: 10 MG/ML
     Dates: start: 20130402, end: 20130402
  12. AVELOX [Concomitant]
     Active Substance: MOXIFLOXACIN HYDROCHLORIDE
     Indication: INFECTION
  13. PARACETAMOL [Concomitant]
     Active Substance: ACETAMINOPHEN
     Dates: start: 20130308, end: 20130416
  14. LANTUS [Concomitant]
     Active Substance: INSULIN GLARGINE
     Dates: start: 20130328, end: 20130423
  15. ASPEGIC [Concomitant]
     Active Substance: ASPIRIN DL-LYSINE
     Indication: CEREBROVASCULAR ACCIDENT
     Dates: start: 20130308, end: 20130330
  16. CLEXANE [Concomitant]
     Active Substance: ENOXAPARIN SODIUM
     Indication: THROMBOSIS PROPHYLAXIS
     Dates: start: 20130325, end: 20130330
  17. MARCOUMAR [Concomitant]
     Active Substance: PHENPROCOUMON
     Indication: PROPHYLAXIS
     Dates: start: 20130308, end: 20130423
  18. CORVATON [Concomitant]
     Active Substance: MOLSIDOMINE
     Indication: CORONARY ARTERY DISEASE
     Dates: start: 20130308, end: 20130318
  19. F2695 [Suspect]
     Active Substance: LEVOMILNACIPRAN
     Indication: CEREBROVASCULAR ACCIDENT
     Dosage: 2 DF
     Route: 048
     Dates: start: 20130318, end: 20130414
  20. AVELOX [Concomitant]
     Active Substance: MOXIFLOXACIN HYDROCHLORIDE
     Indication: DIABETIC FOOT
     Dates: start: 20130308, end: 20130326
  21. TAZOCIN [Concomitant]
     Active Substance: PIPERACILLIN SODIUM\TAZOBACTAM SODIUM
     Indication: BRONCHOPNEUMONIA
     Dates: start: 20130331, end: 20130415
  22. TIBERAL [Concomitant]
     Active Substance: ORNIDAZOLE
     Indication: BRONCHOPNEUMONIA
     Dates: start: 20130330, end: 20130415
  23. AUGMENTIN [Concomitant]
     Active Substance: AMOXICILLIN\CLAVULANATE POTASSIUM
     Indication: DIABETIC FOOT
     Dates: start: 20130312, end: 20130331
  24. CONTRAMAL [Concomitant]
     Active Substance: TRAMADOL HYDROCHLORIDE
     Dates: start: 20130308, end: 20130423
  25. ACTRAPID [Concomitant]
     Active Substance: INSULIN HUMAN
     Dates: start: 20130308, end: 20130328
  26. LASIX [Concomitant]
     Active Substance: FUROSEMIDE
     Indication: BRONCHOPNEUMONIA

REACTIONS (2)
  - Pulmonary oedema [Fatal]
  - Cardiac failure [Fatal]

NARRATIVE: CASE EVENT DATE: 20130421
